FAERS Safety Report 25745214 (Version 4)
Quarter: 2025Q4

REPORT INFORMATION
  Report Type: Report from Study
  Country: CA (occurrence: CA)
  Receive Date: 20250901
  Receipt Date: 20251121
  Transmission Date: 20260118
  Serious: Yes (Hospitalization, Other)
  Sender: TAKEDA
  Company Number: CA-TAKEDA-2024TUS117994

PATIENT
  Age: 2 Year
  Sex: Female

DRUGS (19)
  1. TEDUGLUTIDE [Suspect]
     Active Substance: TEDUGLUTIDE
     Indication: Short-bowel syndrome
     Dosage: 0.51 MILLIGRAM, QD
     Dates: start: 20241118
  2. TEDUGLUTIDE [Suspect]
     Active Substance: TEDUGLUTIDE
     Dosage: UNK UNK, QD
  3. TEDUGLUTIDE [Suspect]
     Active Substance: TEDUGLUTIDE
     Dosage: 0.51 MILLIGRAM, QD
  4. TEDUGLUTIDE [Suspect]
     Active Substance: TEDUGLUTIDE
     Dosage: 0.51 MILLIGRAM, QD
  5. TEDUGLUTIDE [Suspect]
     Active Substance: TEDUGLUTIDE
     Dosage: 0.51 MILLIGRAM, 1/WEEK
  6. TEDUGLUTIDE [Suspect]
     Active Substance: TEDUGLUTIDE
     Dosage: 0.51 MILLIGRAM, QD
  7. TEDUGLUTIDE [Suspect]
     Active Substance: TEDUGLUTIDE
     Dosage: 0.51 MILLIGRAM, QD
  8. TEDUGLUTIDE [Suspect]
     Active Substance: TEDUGLUTIDE
     Dosage: 0.056 MILLIGRAM
  9. TEDUGLUTIDE [Suspect]
     Active Substance: TEDUGLUTIDE
     Dosage: 0.51 MILLIGRAM, QD
  10. TEDUGLUTIDE [Suspect]
     Active Substance: TEDUGLUTIDE
     Dosage: 0.6 MILLIGRAM, QD
  11. TEDUGLUTIDE [Suspect]
     Active Substance: TEDUGLUTIDE
     Dosage: 0.6 MILLIGRAM, QD
  12. METRONIDAZOLE [Suspect]
     Active Substance: METRONIDAZOLE
     Indication: Product used for unknown indication
     Dosage: UNK UNK, QD
  13. LOPERAMIDE [Concomitant]
     Active Substance: LOPERAMIDE
     Dosage: UNK
  14. IRON [Concomitant]
     Active Substance: IRON
     Dosage: UNK
  15. VITAMIN D NOS [Concomitant]
     Active Substance: CHOLECALCIFEROL\ERGOCALCIFEROL
     Dosage: UNK
  16. TYLENOL [Concomitant]
     Active Substance: ACETAMINOPHEN
     Dosage: UNK
  17. OREGANO LEAF OIL [Concomitant]
     Active Substance: OREGANO LEAF OIL
     Dosage: UNK
  18. TPN [Concomitant]
     Active Substance: AMINO ACIDS\DEXTROSE\ELECTROLYTES NOS\SOYBEAN OIL
     Dosage: 560 MILLILITER
  19. TPN [Concomitant]
     Active Substance: AMINO ACIDS\DEXTROSE\ELECTROLYTES NOS\SOYBEAN OIL
     Dosage: 450 MILLILITER

REACTIONS (44)
  - Large intestinal ulcer [Unknown]
  - Pain [Unknown]
  - Post procedural complication [Unknown]
  - Flatulence [Unknown]
  - Pollakiuria [Unknown]
  - Bowel movement irregularity [Recovered/Resolved]
  - Infrequent bowel movements [Recovered/Resolved]
  - Abnormal faeces [Recovered/Resolved]
  - Urine output increased [Unknown]
  - Faecal volume increased [Unknown]
  - Stoma site haemorrhage [Not Recovered/Not Resolved]
  - Diarrhoea [Recovering/Resolving]
  - Gastrointestinal stoma output abnormal [Unknown]
  - Urine output fluctuation [Unknown]
  - Incorrect dose administered [Unknown]
  - Urine output decreased [Unknown]
  - Stoma site pain [Recovering/Resolving]
  - Gastroenteritis viral [Not Recovered/Not Resolved]
  - Ulcer [Recovering/Resolving]
  - Musculoskeletal pain [Unknown]
  - Weight decreased [Unknown]
  - Dehydration [Unknown]
  - Stoma site discharge [Recovering/Resolving]
  - Proctalgia [Recovered/Resolved]
  - Urinary tract infection [Unknown]
  - Weight fluctuation [Unknown]
  - Stoma site complication [Not Recovered/Not Resolved]
  - Drug ineffective [Unknown]
  - Faecal calprotectin increased [Unknown]
  - Stoma site irritation [Unknown]
  - Mucous stools [Unknown]
  - Urine abnormality [Unknown]
  - Weight increased [Unknown]
  - Gastrointestinal microorganism overgrowth [Unknown]
  - Loss of personal independence in daily activities [Not Recovered/Not Resolved]
  - Malaise [Unknown]
  - Feeding disorder [Unknown]
  - Abdominal discomfort [Unknown]
  - Decreased appetite [Not Recovered/Not Resolved]
  - Abdominal pain upper [Recovered/Resolved]
  - Gastrointestinal stoma complication [Recovering/Resolving]
  - Anxiety [Unknown]
  - Nasopharyngitis [Unknown]
  - Infusion site haemorrhage [Recovered/Resolved]

NARRATIVE: CASE EVENT DATE: 20240101
